FAERS Safety Report 8553588-3 (Version None)
Quarter: 2012Q3

REPORT INFORMATION
  Report Type: 
  Country: None (occurrence: None)
  Receive Date: 20120731
  Receipt Date: 20120717
  Transmission Date: 20120928
  Serious: No
  Sender: FDA-Public Use
  Company Number: US-BAYER-2012-072184

PATIENT
  Age: 77 Year
  Sex: Male
  Weight: 89 kg

DRUGS (5)
  1. IMDUR [Concomitant]
  2. ZOCOR [Concomitant]
  3. TOPROL-XL [Concomitant]
  4. ALEVE (CAPLET) [Suspect]
     Indication: ARTHRITIS
     Dosage: 2 DF, QD
     Route: 048
     Dates: start: 20120301
  5. ENALAPRIL MALEATE [Concomitant]

REACTIONS (1)
  - NO ADVERSE EVENT [None]
